FAERS Safety Report 24174533 (Version 2)
Quarter: 2025Q1

REPORT INFORMATION
  Report Type: Report from Study
  Country: US (occurrence: US)
  Receive Date: 20240805
  Receipt Date: 20250113
  Transmission Date: 20250409
  Serious: Yes (Other)
  Sender: ABBVIE
  Company Number: US-ABBVIE-5860997

PATIENT
  Age: 58 Year
  Sex: Female

DRUGS (1)
  1. HUMIRA [Suspect]
     Active Substance: ADALIMUMAB
     Indication: Rheumatoid arthritis
     Route: 058
     Dates: start: 20220523

REACTIONS (4)
  - Retinal detachment [Recovering/Resolving]
  - Arthralgia [Recovering/Resolving]
  - Exostosis [Recovering/Resolving]
  - Loose body in joint [Recovering/Resolving]

NARRATIVE: CASE EVENT DATE: 20240720
